FAERS Safety Report 7861604-7 (Version None)
Quarter: 2011Q4

REPORT INFORMATION
  Report Type: 
  Country: None (occurrence: None)
  Receive Date: 20111027
  Receipt Date: 20111019
  Transmission Date: 20120403
  Serious: Yes (Other)
  Sender: FDA-Public Use
  Company Number: JP-BAXTER-2011BH033321

PATIENT

DRUGS (2)
  1. BUMINATE 5% [Suspect]
     Indication: PRODUCT USED FOR UNKNOWN INDICATION
     Route: 065
  2. BUMINATE 5% [Suspect]
     Route: 065

REACTIONS (1)
  - HEPATITIS C [None]
